FAERS Safety Report 10098858 (Version 1)
Quarter: 2014Q2

REPORT INFORMATION
  Report Type: Spontaneous
  Country: US (occurrence: None)
  Receive Date: 20140422
  Receipt Date: 20140422
  Transmission Date: 20141212
  Serious: Yes (Hospitalization, Congenital Anomaly)
  Sender: FDA-Public Use
  Company Number: None

PATIENT
  Sex: Female
  Weight: 129.28 kg

DRUGS (17)
  1. SEROQUEL [Suspect]
     Indication: BIPOLAR DISORDER
  2. TRILEPTAL [Suspect]
  3. CYMBALTA [Suspect]
     Dosage: 90MG?2 PILLS?1TIMEDAY?ORALLY
     Route: 048
     Dates: start: 201311
  4. GABAPENTEN [Concomitant]
  5. DICLOFENAC SODIUM [Concomitant]
  6. TRAZADONE [Concomitant]
  7. LATUDA [Concomitant]
  8. HYDROCODONE/APAP [Concomitant]
  9. FEXOFENADINE HCL [Concomitant]
  10. TOPIRAMATE [Concomitant]
  11. CLONAZEPAM [Concomitant]
  12. OMERPRAZOLE DR [Concomitant]
  13. FLEXIRAL [Concomitant]
  14. TIZINADINE [Concomitant]
  15. SYMBACORT [Concomitant]
  16. VENTOLIN INHALER [Concomitant]
  17. LEVELTHROXINE [Concomitant]

REACTIONS (4)
  - Weight increased [None]
  - Decreased appetite [None]
  - Suicide attempt [None]
  - Tic [None]
